FAERS Safety Report 17553153 (Version 3)
Quarter: 2020Q2

REPORT INFORMATION
  Report Type: Spontaneous
  Country: PK (occurrence: PK)
  Receive Date: 20200317
  Receipt Date: 20200409
  Transmission Date: 20200713
  Serious: Yes (Hospitalization, Other)
  Sender: FDA-Public Use
  Company Number: PK-NOVOPROD-717805

PATIENT
  Age: 52 Year
  Sex: Female
  Weight: 102 kg

DRUGS (2)
  1. NOVORAPID [Suspect]
     Active Substance: INSULIN ASPART
     Indication: TYPE 2 DIABETES MELLITUS
     Dosage: 60 IU, QD
     Route: 058
     Dates: start: 20100305
  2. NOVORAPID [Suspect]
     Active Substance: INSULIN ASPART
     Dosage: 18 IU, TID
     Route: 058

REACTIONS (2)
  - Congenital aortic valve stenosis [Recovered/Resolved]
  - Condition aggravated [Recovered/Resolved]

NARRATIVE: CASE EVENT DATE: 201912
